FAERS Safety Report 7458844-8 (Version None)
Quarter: 2011Q2

REPORT INFORMATION
  Report Type: 
  Country: None (occurrence: None)
  Receive Date: 20110504
  Receipt Date: 20110426
  Transmission Date: 20111010
  Serious: Yes (Hospitalization)
  Sender: FDA-Public Use
  Company Number: DE-GENENTECH-317557

PATIENT
  Sex: Male

DRUGS (3)
  1. LUCENTIS [Suspect]
     Indication: MACULAR DEGENERATION
     Dosage: UNK
     Route: 031
     Dates: start: 20110222
  2. CARMEN [Concomitant]
     Indication: PRODUCT USED FOR UNKNOWN INDICATION
  3. BLOPRESS [Concomitant]
     Indication: PRODUCT USED FOR UNKNOWN INDICATION

REACTIONS (3)
  - SKIN LESION [None]
  - RASH GENERALISED [None]
  - DRUG HYPERSENSITIVITY [None]
